FAERS Safety Report 5081506-1 (Version None)
Quarter: 2006Q3

REPORT INFORMATION
  Report Type: 
  Country: None (occurrence: None)
  Receive Date: 20060816
  Receipt Date: 20060816
  Transmission Date: 20061208
  Serious: Yes (Death)
  Sender: FDA-Public Use
  Company Number: None

PATIENT

DRUGS (3)
  1. DEMEROL [Suspect]
     Dosage: TABLET
  2. DILANTIN [Suspect]
  3. WELLBUTRIN [Suspect]

REACTIONS (7)
  - CONVULSION [None]
  - DISORIENTATION [None]
  - DIZZINESS [None]
  - DRUG INEFFECTIVE [None]
  - DRUG TOXICITY [None]
  - MEDICATION ERROR [None]
  - MYOCARDIAL INFARCTION [None]
